FAERS Safety Report 14502257 (Version 1)
Quarter: 2018Q1

REPORT INFORMATION
  Report Type: Spontaneous
  Country: CA (occurrence: CA)
  Receive Date: 20180208
  Receipt Date: 20180208
  Transmission Date: 20180509
  Serious: Yes (Disabling, Other)
  Sender: FDA-Public Use
  Company Number: CA-ABBVIE-18K-028-2224113-00

PATIENT
  Age: 47 Year
  Sex: Female

DRUGS (3)
  1. HUMIRA [Suspect]
     Active Substance: ADALIMUMAB
     Indication: PRODUCT USED FOR UNKNOWN INDICATION
     Route: 058
     Dates: start: 201702, end: 201712
  2. SULFASALAZINE. [Concomitant]
     Active Substance: SULFASALAZINE
     Indication: RHEUMATOID ARTHRITIS
  3. PREDNISONE. [Concomitant]
     Active Substance: PREDNISONE
     Indication: PRODUCT USED FOR UNKNOWN INDICATION
     Dosage: TAPERING

REACTIONS (8)
  - C-reactive protein abnormal [Unknown]
  - Arthralgia [Unknown]
  - Emotional distress [Unknown]
  - Arthropathy [Unknown]
  - Drug effect incomplete [Not Recovered/Not Resolved]
  - Condition aggravated [Unknown]
  - General physical condition abnormal [Unknown]
  - Crying [Unknown]

NARRATIVE: CASE EVENT DATE: 20171123
